FAERS Safety Report 5911578-0 (Version None)
Quarter: 2008Q4

REPORT INFORMATION
  Report Type: 
  Country: None (occurrence: None)
  Receive Date: 20081003
  Receipt Date: 20080919
  Transmission Date: 20090506
  Serious: Yes (Hospitalization)
  Sender: FDA-Public Use
  Company Number: 2008S1017161

PATIENT
  Age: 81 Year
  Sex: Male

DRUGS (11)
  1. AMLODIPINE [Suspect]
     Indication: DRUG USE FOR UNKNOWN INDICATION
  2. ATENOLOL [Suspect]
     Indication: DRUG USE FOR UNKNOWN INDICATION
  3. ISOSORBIDE MONONITRATE [Suspect]
     Indication: DRUG USE FOR UNKNOWN INDICATION
  4. LISINOPRIL [Suspect]
     Indication: DRUG USE FOR UNKNOWN INDICATION
  5. OLMESARTAN MEDOXOMIL [Suspect]
     Indication: DRUG USE FOR UNKNOWN INDICATION
     Dosage: ; ORAL
     Route: 048
  6. OMEPRAZOLE [Suspect]
  7. ACETYLSALICYLIC ACID SRT [Concomitant]
  8. ATORVASTATIN CALCIUM [Concomitant]
  9. OMEPRAZOLE [Concomitant]
  10. QUININE [Concomitant]
  11. ISOSORBIDE MONONITRATE [Concomitant]

REACTIONS (6)
  - BRADYCARDIA [None]
  - HYPOCALCAEMIA [None]
  - HYPOKALAEMIA [None]
  - HYPOMAGNESAEMIA [None]
  - HYPOTENSION [None]
  - URINARY TRACT INFECTION [None]
